FAERS Safety Report 15376154 (Version 1)
Quarter: 2018Q3

REPORT INFORMATION
  Report Type: Spontaneous
  Country: FR (occurrence: FR)
  Receive Date: 20180912
  Receipt Date: 20180912
  Transmission Date: 20181010
  Serious: Yes (Hospitalization)
  Sender: FDA-Public Use
  Company Number: FR-SA-2018SA246246

PATIENT
  Age: 70 Year
  Sex: Female

DRUGS (3)
  1. OXALIPLATINE WINTHROP [Suspect]
     Active Substance: OXALIPLATIN
     Indication: B-CELL LYMPHOMA
     Dosage: UNK UNK, UNK
     Route: 048
     Dates: start: 20180221, end: 20180613
  2. RITUXIMAB. [Suspect]
     Active Substance: RITUXIMAB
     Indication: B-CELL LYMPHOMA
     Dosage: UNK UNK, UNK
     Route: 048
     Dates: start: 20180221, end: 20180613
  3. GEMCITABINE HYDROCHLORIDE. [Suspect]
     Active Substance: GEMCITABINE HYDROCHLORIDE
     Indication: B-CELL LYMPHOMA
     Dosage: UNK UNK, UNK
     Route: 041
     Dates: start: 20180221, end: 20180613

REACTIONS (3)
  - Encephalopathy [Recovered/Resolved]
  - Agitation [Recovered/Resolved]
  - Confusional state [Recovered/Resolved]

NARRATIVE: CASE EVENT DATE: 20180709
